FAERS Safety Report 8502729-2 (Version None)
Quarter: 2012Q3

REPORT INFORMATION
  Report Type: 
  Country: None (occurrence: None)
  Receive Date: 20120711
  Receipt Date: 20120627
  Transmission Date: 20120928
  Serious: Yes (Hospitalization)
  Sender: FDA-Public Use
  Company Number: DK-AMGEN-DNKCT2012013537

PATIENT
  Age: 40 Year
  Sex: Female

DRUGS (9)
  1. ETANERCEPT [Suspect]
     Indication: RHEUMATOID ARTHRITIS
     Dosage: 25 MG, WEEKLY
     Dates: start: 20090428, end: 20090529
  2. PREDNISOLONE [Concomitant]
     Dosage: 5 MG, QD
     Dates: start: 19990927, end: 20090428
  3. HUMIRA [Concomitant]
     Indication: RHEUMATOID ARTHRITIS
     Dosage: PAUSED FROM 04APR2004 UNTIL 23OKT2004
     Dates: start: 20030616, end: 20061212
  4. AZATHIOPRINE [Concomitant]
     Indication: RHEUMATOID ARTHRITIS
     Dosage: 50 MG, 4X/DAY
     Dates: start: 20061212, end: 20090511
  5. TRAMADOL HCL [Concomitant]
     Dosage: 100 MG, 1X/DAY
     Route: 048
  6. TRAMADOL HCL [Concomitant]
     Dosage: 50 MG, AS NEEDED
  7. METHOTREXATE [Concomitant]
     Indication: RHEUMATOID ARTHRITIS
     Dosage: UNK UNK, UNK
     Route: 048
     Dates: start: 19990917, end: 20051116
  8. HUMIRA [Concomitant]
  9. PANODIL RETARD [Concomitant]
     Dosage: 1000 MG, 4X/DAY
     Route: 048

REACTIONS (1)
  - OVARIAN EPITHELIAL CANCER [None]
